FAERS Safety Report 17703200 (Version 1)
Quarter: 2020Q2

REPORT INFORMATION
  Report Type: Report from Study
  Country: IT (occurrence: IT)
  Receive Date: 20200424
  Receipt Date: 20200424
  Transmission Date: 20200714
  Serious: Yes (Hospitalization)
  Sender: FDA-Public Use
  Company Number: IT-ROCHE-2583281

PATIENT
  Sex: Male
  Weight: 80 kg

DRUGS (4)
  1. IRINOTECAN [Suspect]
     Active Substance: IRINOTECAN
     Indication: COLORECTAL CANCER METASTATIC
     Dosage: DATE OF MOST RECENT DOSE 247 MG PRIOR TO AE ONSET: 09/JAN/2020?3 CYCLES OF INDUCTION
     Route: 065
     Dates: start: 20191201
  2. OXALIPLATIN. [Suspect]
     Active Substance: OXALIPLATIN
     Indication: COLORECTAL CANCER METASTATIC
     Dosage: DATE OF MOST RECENT DOSE 170 MG PRIOR TO AE ONSET: 09/JAN/2020?3 CYCLES OF INDUCTION
     Route: 042
     Dates: start: 20191210
  3. 5-FLUOROURACIL [FLUOROURACIL] [Suspect]
     Active Substance: FLUOROURACIL
     Indication: COLORECTAL CANCER METASTATIC
     Dosage: DATE OF MOST RECENT DOSE 4800 MG: 09/JAN/2020?3 CYCLES
     Route: 042
     Dates: start: 20191210
  4. BEVACIZUMAB. [Suspect]
     Active Substance: BEVACIZUMAB
     Indication: COLORECTAL CANCER METASTATIC
     Dosage: DATE OF MOST RECENT DOSE 400 MG: 09/JAN/2020?3 CYCLES INDUCTION
     Route: 042
     Dates: start: 20191210

REACTIONS (1)
  - Mesenteric cyst [Recovered/Resolved]

NARRATIVE: CASE EVENT DATE: 20200204
